FAERS Safety Report 25538155 (Version 3)
Quarter: 2025Q3

REPORT INFORMATION
  Report Type: Report from Study
  Country: US (occurrence: US)
  Receive Date: 20250710
  Receipt Date: 20250826
  Transmission Date: 20251020
  Serious: Yes (Hospitalization, Other)
  Sender: BOEHRINGER INGELHEIM
  Company Number: US-BoehringerIngelheim-2025-BI-020659

PATIENT
  Age: 79 Year
  Sex: Female

DRUGS (3)
  1. OFEV [Suspect]
     Active Substance: NINTEDANIB
     Indication: Idiopathic pulmonary fibrosis
  2. OFEV [Suspect]
     Active Substance: NINTEDANIB
  3. PREDNISONE [Concomitant]
     Active Substance: PREDNISONE
     Indication: Lung disorder

REACTIONS (30)
  - Pneumonia [Unknown]
  - Seizure [Unknown]
  - Gastrointestinal melanoma [Unknown]
  - Pain [Unknown]
  - Arthralgia [Unknown]
  - Nausea [Unknown]
  - Renal pain [Unknown]
  - Diarrhoea [Recovered/Resolved]
  - Weight increased [Unknown]
  - Asthenia [Unknown]
  - Malaise [Unknown]
  - Headache [Recovered/Resolved]
  - Pain in extremity [Unknown]
  - Intra-abdominal fluid collection [Unknown]
  - Gout [Unknown]
  - Blood glucose fluctuation [Unknown]
  - Cough [Unknown]
  - Blood glucose increased [Unknown]
  - Dizziness [Unknown]
  - Constipation [Unknown]
  - Gait disturbance [Unknown]
  - Dry mouth [Unknown]
  - Visual impairment [Unknown]
  - Urinary incontinence [Unknown]
  - Pain in extremity [Unknown]
  - Increased appetite [Unknown]
  - Hypertension [Unknown]
  - Diarrhoea [Unknown]
  - Intervertebral disc protrusion [Unknown]
  - Fluid retention [Unknown]

NARRATIVE: CASE EVENT DATE: 20250101
